FAERS Safety Report 14672022 (Version 2)
Quarter: 2018Q2

REPORT INFORMATION
  Report Type: Spontaneous
  Country: DE (occurrence: DE)
  Receive Date: 20180323
  Receipt Date: 20180424
  Transmission Date: 20180711
  Serious: Yes (Hospitalization, Other)
  Sender: FDA-Public Use
  Company Number: DE-BIOGEN-2018BI00528651

PATIENT
  Age: 51 Year
  Sex: Female
  Weight: 85 kg

DRUGS (9)
  1. QUETIAPINE. [Concomitant]
     Active Substance: QUETIAPINE
     Route: 066
     Dates: start: 20180128
  2. OLANZAPINE. [Concomitant]
     Active Substance: OLANZAPINE
     Indication: PSYCHOTIC DISORDER
     Route: 065
     Dates: start: 20180126
  3. DEKRISTOL [Concomitant]
     Active Substance: CHOLECALCIFEROL
     Indication: PRODUCT USED FOR UNKNOWN INDICATION
     Route: 065
  4. OLANZAPINE. [Concomitant]
     Active Substance: OLANZAPINE
     Route: 065
     Dates: start: 20180128
  5. DEKRISTOL [Concomitant]
     Active Substance: CHOLECALCIFEROL
     Route: 065
     Dates: start: 20180128
  6. QUETIAPINE. [Concomitant]
     Active Substance: QUETIAPINE
     Indication: ANXIETY
     Dosage: AT NIGHT
     Route: 065
     Dates: start: 2016, end: 20180127
  7. OMEPRAZOLE. [Concomitant]
     Active Substance: OMEPRAZOLE
     Indication: PRODUCT USED FOR UNKNOWN INDICATION
     Dosage: AS NEEDED
     Route: 065
     Dates: start: 20180128
  8. TECFIDERA [Suspect]
     Active Substance: DIMETHYL FUMARATE
     Indication: MULTIPLE SCLEROSIS
     Dosage: MAINTENANCE DOSE
     Route: 048
     Dates: start: 20180111
  9. TECFIDERA [Suspect]
     Active Substance: DIMETHYL FUMARATE
     Dosage: STARTING DOSE
     Route: 048
     Dates: start: 20180110

REACTIONS (2)
  - Eosinophilia [Not Recovered/Not Resolved]
  - Psychotic disorder [Not Recovered/Not Resolved]

NARRATIVE: CASE EVENT DATE: 20180208
